FAERS Safety Report 6521939-7 (Version None)
Quarter: 2009Q4

REPORT INFORMATION
  Report Type: 
  Country: None (occurrence: None)
  Receive Date: 20091224
  Receipt Date: 20091217
  Transmission Date: 20100525
  Serious: Yes (Hospitalization)
  Sender: FDA-Public Use
  Company Number: 2009003894

PATIENT
  Age: 54 Year
  Sex: Male

DRUGS (12)
  1. ERLOTINIB HYDROCHLORIDE [Suspect]
     Indication: GLIOBLASTOMA
     Dosage: 150 MG/M2, ORAL
     Route: 048
     Dates: start: 20090925, end: 20091203
  2. BEVACIZUMAB (INJECTION FOR INFUSION) [Suspect]
     Indication: GLIOBLASTOMA
     Dosage: 10 MG/KG, 1X PER 2 WEEK), INTRAVENOUS
     Route: 042
     Dates: start: 20090925, end: 20091203
  3. TEMOZOLOMIDE [Suspect]
     Indication: GLIOBLASTOMA
     Dosage: 200 MG/M2, ORAL
     Route: 048
     Dates: start: 20090925, end: 20091127
  4. KEPPRA [Concomitant]
  5. PRILOSEC [Concomitant]
  6. TYLENOL [Concomitant]
  7. COLACE (DOCUSATE SODIUM) [Concomitant]
  8. BACTRIM DS [Concomitant]
  9. VALSARTAN [Concomitant]
  10. MINOCYCLINE HCL [Concomitant]
  11. DECADRON [Concomitant]
  12. MEGACE [Concomitant]

REACTIONS (2)
  - PNEUMOTHORAX [None]
  - PRODUCTIVE COUGH [None]
